FAERS Safety Report 5700328-9 (Version None)
Quarter: 2008Q2

REPORT INFORMATION
  Report Type: 
  Country: None (occurrence: None)
  Receive Date: 20080410
  Receipt Date: 20080404
  Transmission Date: 20081010
  Serious: Yes (Other)
  Sender: FDA-Public Use
  Company Number: B0515810A

PATIENT
  Age: 45 Year
  Sex: Female

DRUGS (3)
  1. TELZIR [Suspect]
     Indication: DRUG USE FOR UNKNOWN INDICATION
     Dosage: 700MG TWICE PER DAY
     Route: 048
     Dates: start: 20070110, end: 20070901
  2. RITONAVIR [Suspect]
     Indication: DRUG USE FOR UNKNOWN INDICATION
     Dosage: 100MG TWICE PER DAY
     Route: 048
     Dates: start: 20070110, end: 20070901
  3. RESCRIPTOR [Concomitant]
     Dosage: 400MG PER DAY
     Route: 048

REACTIONS (2)
  - NEPHROLITHIASIS [None]
  - PAIN [None]
